FAERS Safety Report 9172888 (Version 4)
Quarter: 2013Q4

REPORT INFORMATION
  Report Type: Report from Study
  Country: DE (occurrence: DE)
  Receive Date: 20130319
  Receipt Date: 20131230
  Transmission Date: 20140711
  Serious: Yes (Death, Life-Threatening, Hospitalization)
  Sender: FDA-Public Use
  Company Number: DE-TEVA-385960GER

PATIENT
  Age: 75 Year
  Sex: Female

DRUGS (26)
  1. 5-FU [Suspect]
     Indication: METASTATIC GASTRIC CANCER
     Route: 041
     Dates: start: 20120327, end: 20120401
  2. 5-FU [Suspect]
     Dosage: 233.3333 MILLIGRAM DAILY;
     Route: 041
     Dates: start: 20120420, end: 20120718
  3. CDDP (CISPLATIN) [Suspect]
     Indication: METASTATIC GASTRIC CANCER
     Dosage: 6.9524 MILLIGRAM DAILY;
     Route: 041
     Dates: start: 20120327, end: 20120327
  4. CDDP (CISPLATIN) [Suspect]
     Dosage: 4.6667 MILLIGRAM DAILY;
     Route: 041
     Dates: start: 20120420, end: 20120713
  5. PANTOZOL [Concomitant]
     Indication: PROPHYLAXIS
     Dates: start: 20120307, end: 20120719
  6. DILTIAZEM [Concomitant]
     Indication: HYPERTENSION
     Dates: start: 20120307, end: 20120719
  7. INDAPAMID [Concomitant]
     Indication: HYPERTENSION
     Dates: start: 20120307, end: 20120719
  8. L-THYROXIN [Concomitant]
     Indication: THYROIDECTOMY
     Dates: start: 2012, end: 20120719
  9. INSUMAN RAPID [Concomitant]
     Indication: DIABETES MELLITUS
     Dates: start: 2012, end: 20120719
  10. LANTUS [Concomitant]
     Indication: DIABETES MELLITUS
     Dates: start: 2012, end: 20120719
  11. TRAMAL [Concomitant]
     Indication: PAIN PROPHYLAXIS
     Dates: start: 20120307, end: 20120719
  12. MOVICOL [Concomitant]
     Indication: CONSTIPATION PROPHYLAXIS
     Dates: start: 20120307, end: 20120719
  13. IBUPROFEN [Concomitant]
     Indication: PAIN PROPHYLAXIS
     Dates: start: 20120420, end: 20120727
  14. NOVALGIN [Concomitant]
     Indication: PAIN PROPHYLAXIS
     Dates: start: 20120510, end: 20120727
  15. MCP [Concomitant]
     Indication: PROPHYLAXIS OF NAUSEA AND VOMITING
     Dates: start: 20120510, end: 20120727
  16. VOMEX A [Concomitant]
     Indication: PROPHYLAXIS OF NAUSEA AND VOMITING
     Dates: start: 20120510, end: 20120727
  17. ASS [Concomitant]
     Indication: PROPHYLAXIS
     Dosage: 100 MILLIGRAM DAILY;
     Dates: start: 20120621, end: 20120727
  18. CLEXANE [Concomitant]
     Indication: THROMBOSIS PROPHYLAXIS
     Dates: start: 20120710, end: 20120727
  19. CLEXANE [Concomitant]
     Indication: THROMBOSIS PROPHYLAXIS
  20. ALLEVYN ADHESIVE [Concomitant]
     Indication: SKIN ULCER
     Dates: start: 20120712
  21. MORPHINE SULFATE [Concomitant]
     Indication: OESOPHAGEAL PAIN
     Dates: start: 201207, end: 201207
  22. DIAZEPAM [Concomitant]
     Indication: PAIN PROPHYLAXIS
     Dates: start: 201207, end: 201207
  23. PICOLAX [Concomitant]
     Indication: CONSTIPATION PROPHYLAXIS
     Dates: start: 20120712, end: 20120718
  24. METOCLOPRAMIDE [Concomitant]
     Indication: CONSTIPATION PROPHYLAXIS
     Dates: start: 20120712, end: 20120718
  25. POTASSIUM CHLORIDE [Concomitant]
     Indication: PROPHYLAXIS
     Dates: start: 20120713, end: 20120713
  26. MAGNESIUM [Concomitant]
     Indication: PROPHYLAXIS
     Dates: start: 20120713, end: 20120713

REACTIONS (2)
  - Sepsis [Fatal]
  - Pancytopenia [Not Recovered/Not Resolved]
